FAERS Safety Report 5403458-4 (Version None)
Quarter: 2007Q3

REPORT INFORMATION
  Report Type: 
  Country: None (occurrence: None)
  Receive Date: 20070713
  Receipt Date: 20060817
  Transmission Date: 20080115
  Serious: Yes (Hospitalization)
  Sender: FDA-Public Use
  Company Number: 460418

PATIENT
  Age: 67 Year
  Sex: Female
  Weight: 71.7 kg

DRUGS (5)
  1. BONIVA [Suspect]
     Indication: OSTEOPOROSIS
     Dosage: 1 DOSE FORM 1 PER MONTH, ORAL
     Route: 048
     Dates: start: 20060630
  2. DYAZIDE [Concomitant]
  3. VALIUM [Concomitant]
  4. KLONOPIN [Concomitant]
  5. ZOCOR [Concomitant]

REACTIONS (3)
  - DIZZINESS [None]
  - OESOPHAGEAL ULCER [None]
  - PEPTIC ULCER [None]
